FAERS Safety Report 4835467-8 (Version None)
Quarter: 2005Q4

REPORT INFORMATION
  Report Type: 
  Country: None (occurrence: None)
  Receive Date: 20051122
  Receipt Date: 20051122
  Transmission Date: 20060501
  Serious: Yes (Hospitalization)
  Sender: FDA-Public Use
  Company Number: None

PATIENT
  Age: 58 Year
  Sex: Male
  Weight: 74.3899 kg

DRUGS (1)
  1. CARBAMAZEPINE [Suspect]
     Indication: BACK PAIN
     Dosage: 200 MG   BID   PO
     Route: 048
     Dates: start: 20051114, end: 20051118

REACTIONS (6)
  - ACCIDENT [None]
  - COORDINATION ABNORMAL [None]
  - DRUG TOXICITY [None]
  - MENTAL STATUS CHANGES [None]
  - NYSTAGMUS [None]
  - SOMNOLENCE [None]
